FAERS Safety Report 11615709 (Version 1)
Quarter: 2015Q4

REPORT INFORMATION
  Report Type: Report from Study
  Country: US (occurrence: US)
  Receive Date: 20151009
  Receipt Date: 20151009
  Transmission Date: 20160304
  Serious: No
  Sender: FDA-Public Use
  Company Number: US-ABBVIE-15P-163-1456554-00

PATIENT
  Sex: Female

DRUGS (1)
  1. DUOPA [Suspect]
     Active Substance: CARBIDOPA\LEVODOPA
     Indication: PRODUCT USED FOR UNKNOWN INDICATION
     Route: 050
     Dates: start: 20150824

REACTIONS (4)
  - Device dislocation [Recovered/Resolved]
  - Stoma site pain [Recovered/Resolved]
  - Abdominal pain [Recovered/Resolved]
  - Device issue [Recovered/Resolved]
